FAERS Safety Report 8310383-8 (Version None)
Quarter: 2012Q2

REPORT INFORMATION
  Report Type: 
  Country: None (occurrence: None)
  Receive Date: 20120425
  Receipt Date: 20120420
  Transmission Date: 20120825
  Serious: Yes (Death)
  Sender: FDA-Public Use
  Company Number: US-SANOFI-AVENTIS-2012SA028094

PATIENT
  Age: 63 Year
  Sex: Female
  Weight: 71 kg

DRUGS (16)
  1. FIORICET [Concomitant]
  2. RETIN-A [Concomitant]
  3. ALLEGRA [Concomitant]
  4. CARBOPLATIN [Suspect]
     Dosage: DOSE LEVEL: 6 AUC;FORM: VIAL
     Route: 042
     Dates: start: 20090317, end: 20090327
  5. PROPRANOLOL HYDROCHLORIDE [Concomitant]
     Indication: HYPERTENSION
  6. ZANTAC [Concomitant]
  7. DONNATAL [Concomitant]
  8. ADVAIR DISKUS 100/50 [Concomitant]
  9. DOCETAXEL [Suspect]
     Dosage: FORM:VIAL;DOSE LEVEL 75 MG/M2
     Route: 042
     Dates: start: 20090317, end: 20090327
  10. BEVACIZUMAB [Suspect]
     Dosage: DOSE LEVEL 15 MG/KG;FORM:VIAL
     Route: 042
     Dates: start: 20090317, end: 20090327
  11. TYLENOL (CAPLET) [Concomitant]
  12. TRASTUZUMAB [Suspect]
     Dosage: FORMS: VIAL;DOSE LEVEL 8 MG/KG
     Route: 042
     Dates: start: 20090317, end: 20090327
  13. CLINDAMYCIN [Concomitant]
  14. PROPRANOLOL HYDROCHLORIDE [Concomitant]
     Indication: MIGRAINE
  15. SUMATRIPTAN [Concomitant]
  16. ELAVIL [Concomitant]
     Indication: MIGRAINE

REACTIONS (3)
  - NEUTROPENIC SEPSIS [None]
  - DIARRHOEA [None]
  - CARDIO-RESPIRATORY ARREST [None]
